FAERS Safety Report 5820498-1 (Version None)
Quarter: 2008Q3

REPORT INFORMATION
  Report Type: 
  Country: None (occurrence: None)
  Receive Date: 20080724
  Receipt Date: 20070917
  Transmission Date: 20090109
  Serious: No
  Sender: FDA-Public Use
  Company Number: A0671766A

PATIENT

DRUGS (3)
  1. AVANDIA [Suspect]
     Indication: DRUG USE FOR UNKNOWN INDICATION
     Dosage: 4MG UNKNOWN
     Route: 048
  2. LIPITOR [Concomitant]
  3. LEXAPRO [Concomitant]

REACTIONS (2)
  - CARDIAC DISORDER [None]
  - SCAN MYOCARDIAL PERFUSION ABNORMAL [None]
